FAERS Safety Report 26180924 (Version 1)
Quarter: 2025Q4

REPORT INFORMATION
  Report Type: Report from Study
  Country: US (occurrence: US)
  Receive Date: 20251221
  Receipt Date: 20251221
  Transmission Date: 20260117
  Serious: Yes (Hospitalization)
  Sender: ASTELLAS
  Company Number: US-ASTELLAS-2025-AER-069574

PATIENT
  Sex: Male

DRUGS (3)
  1. XTANDI [Suspect]
     Active Substance: ENZALUTAMIDE
     Indication: Product used for unknown indication
     Dosage: 4 40MG CAPSULES ONCE A DAY
     Route: 048
     Dates: start: 2025, end: 2025
  2. XTANDI [Suspect]
     Active Substance: ENZALUTAMIDE
     Dosage: 3 40MG CAPSULES ONCE A DAY
     Route: 048
     Dates: start: 2025
  3. TALZENNA [Concomitant]
     Active Substance: TALAZOPARIB TOSYLATE
     Indication: Product used for unknown indication
     Route: 065

REACTIONS (2)
  - Feeding disorder [Recovered/Resolved]
  - Feeling abnormal [Recovered/Resolved]

NARRATIVE: CASE EVENT DATE: 20250101
